FAERS Safety Report 10979491 (Version 2)
Quarter: 2015Q2

REPORT INFORMATION
  Report Type: Spontaneous
  Country: RU (occurrence: RU)
  Receive Date: 20150402
  Receipt Date: 20150526
  Transmission Date: 20150821
  Serious: Yes (Death, Other)
  Sender: FDA-Public Use
  Company Number: RU-BIOMARINAP-RU-2015-105959

PATIENT
  Age: 4 Year
  Sex: Female
  Weight: 18 kg

DRUGS (2)
  1. ALDURAZYME [Suspect]
     Active Substance: LARONIDASE
     Indication: MUCOPOLYSACCHARIDOSIS I
     Dosage: 111.11 IU/KG, QW
     Route: 041
     Dates: start: 201503, end: 20150422
  2. ALDURAZYME [Suspect]
     Active Substance: LARONIDASE
     Dosage: 83.33 IU/KG, QW
     Route: 041
     Dates: start: 20140720, end: 201503

REACTIONS (6)
  - Coma [Unknown]
  - Brain oedema [Fatal]
  - Corneal disorder [Unknown]
  - Hydrocephalus [Unknown]
  - Intentional product misuse [Unknown]
  - Visual acuity reduced [Unknown]
